FAERS Safety Report 6064316-8 (Version None)
Quarter: 2009Q1

REPORT INFORMATION
  Report Type: 
  Country: None (occurrence: None)
  Receive Date: 20090203
  Receipt Date: 20090203
  Transmission Date: 20090719
  Serious: No
  Sender: FDA-Public Use
  Company Number: None

PATIENT
  Sex: Male
  Weight: 89.8122 kg

DRUGS (6)
  1. CARVEDILOL [Suspect]
     Indication: CORONARY ARTERY DISEASE
     Dosage: 12.5 MG TWICE DAILY ORAL
     Route: 048
     Dates: start: 20080830, end: 20080904
  2. CARVEDILOL [Suspect]
     Indication: ISCHAEMIC CARDIOMYOPATHY
     Dosage: 12.5 MG TWICE DAILY ORAL
     Route: 048
     Dates: start: 20080830, end: 20080904
  3. ZOCOR [Concomitant]
  4. ZETIA [Concomitant]
  5. ALTACE [Concomitant]
  6. ASPIRIN [Concomitant]

REACTIONS (3)
  - ASTHENIA [None]
  - DIARRHOEA [None]
  - DRUG INTOLERANCE [None]
